FAERS Safety Report 8606752 (Version 3)
Quarter: 2014Q1

REPORT INFORMATION
  Report Type: Spontaneous
  Country: US (occurrence: US)
  Receive Date: 20120611
  Receipt Date: 20140117
  Transmission Date: 20141002
  Serious: No
  Sender: FDA-Public Use
  Company Number: US-ASTRAZENECA-2012SE35635

PATIENT
  Age: 54 Year
  Sex: Female
  Weight: 56.7 kg

DRUGS (35)
  1. NEXIUM [Suspect]
     Route: 048
     Dates: start: 20080920
  2. NEXIUM [Suspect]
     Route: 048
     Dates: start: 2008, end: 2010
  3. NEXIUM [Suspect]
     Dosage: TWO TIMES A DAY
     Route: 048
     Dates: start: 2010
  4. NEXIUM [Suspect]
     Route: 048
     Dates: start: 20110321
  5. NEXIUM [Suspect]
     Route: 048
     Dates: start: 20110325
  6. NEXIUM [Suspect]
     Route: 048
     Dates: start: 20110325
  7. OMEGA XL [Concomitant]
  8. VITAMIN D21 [Concomitant]
     Dosage: C5000
  9. DHA [Concomitant]
     Dosage: 1 DAY
  10. NORCO [Concomitant]
     Dosage: 5-325 MG  AS REQURIED
  11. METOPROLOL TARTRATE [Concomitant]
  12. METOPROLOL TARTRATE [Concomitant]
     Dates: start: 20080920
  13. LOSARTAN [Concomitant]
  14. CLARINEX D [Concomitant]
     Dosage: DAILY, AS REQUIRED
     Route: 048
  15. PREDNISONE [Concomitant]
     Route: 048
     Dates: start: 20080918
  16. PREDNISONE [Concomitant]
     Route: 048
  17. RAMIPRIL [Concomitant]
     Dates: start: 20080210
  18. ATACAND [Concomitant]
     Dates: start: 20080920
  19. SINGULAIR [Concomitant]
     Dates: start: 20080920
  20. HYDROCODONE-APAP [Concomitant]
     Dosage: 7.5 TO 750
     Dates: start: 20081230
  21. AZITHROMYCIN [Concomitant]
     Dates: start: 20090122
  22. AMOXICILLIN [Concomitant]
     Dates: start: 20080920
  23. TRILYTE [Concomitant]
     Dates: start: 20090122
  24. FLUCONAZOLE [Concomitant]
     Dates: start: 20090310
  25. NAPROXEN [Concomitant]
     Dates: start: 20090824
  26. TRAMADOL [Concomitant]
     Dates: start: 20090824
  27. AMOX TR [Concomitant]
     Dosage: 875 TO 125 MG
     Dates: start: 20090831
  28. BETAMETHASONE [Concomitant]
     Dates: start: 20080918
  29. VITAMIN D2 [Concomitant]
     Dates: start: 20080918
  30. DAYPRO [Concomitant]
  31. MONTELUKAST [Concomitant]
     Route: 048
  32. DIOVAN [Concomitant]
  33. CLARINEX [Concomitant]
     Dosage: 12 HOUR
  34. AMITRIPTYLINE HCL [Concomitant]
     Dates: start: 20110708
  35. LEVAQUIN [Concomitant]
     Dates: start: 20110708

REACTIONS (8)
  - Osteoporosis [Unknown]
  - Wrist fracture [Unknown]
  - Fibromyalgia [Unknown]
  - Osteoarthritis [Unknown]
  - Osteopenia [Unknown]
  - Pain in extremity [Unknown]
  - Bone loss [Unknown]
  - Arthralgia [Unknown]
